FAERS Safety Report 8774310 (Version 1)
Quarter: 2012Q4

REPORT INFORMATION
  Report Type: 
  Country: US (occurrence: US)
  Receive Date: 20120907
  Receipt Date: 20120907
  Transmission Date: 20130627
  Serious: Yes (Other)
  Sender: FDA-Public Use
  Company Number: US-PFIZER INC-2012218649

PATIENT
  Age: 56 Year
  Sex: Female
  Weight: 57.14 kg

DRUGS (3)
  1. LYRICA [Suspect]
     Indication: FIBROMATOSIS
     Dosage: 75 mg, 3x/day
     Dates: start: 20120813
  2. LYRICA [Suspect]
     Indication: NEUROPATHY PERIPHERAL
  3. METOPROLOL [Concomitant]
     Indication: HYPERTENSION
     Dosage: 15 mg, 2x/day (once in morning and once at night)

REACTIONS (9)
  - Joint swelling [Not Recovered/Not Resolved]
  - Oedema peripheral [Not Recovered/Not Resolved]
  - Dyspnoea [Unknown]
  - Abdominal distension [Not Recovered/Not Resolved]
  - Abnormal dreams [Unknown]
  - Impatience [Unknown]
  - Irritability [Unknown]
  - Personality change [Unknown]
  - Drug ineffective [Unknown]
